FAERS Safety Report 22286016 (Version 5)
Quarter: 2024Q3

REPORT INFORMATION
  Report Type: Report from Study
  Country: US (occurrence: US)
  Receive Date: 20230505
  Receipt Date: 20240724
  Transmission Date: 20241017
  Serious: No
  Sender: NOVARTIS
  Company Number: US-002147023-NVSC2023US101052

PATIENT
  Sex: Female

DRUGS (1)
  1. ENTRESTO [Suspect]
     Active Substance: SACUBITRIL\VALSARTAN
     Indication: Product used for unknown indication
     Dosage: UNK (24-26MG PILLS)
     Route: 065

REACTIONS (5)
  - Asthenia [Unknown]
  - Memory impairment [Unknown]
  - Weight decreased [Unknown]
  - Amnesia [Unknown]
  - Wrong technique in product usage process [Unknown]
